FAERS Safety Report 4757169-9 (Version None)
Quarter: 2005Q3

REPORT INFORMATION
  Report Type: 
  Country: None (occurrence: None)
  Receive Date: 20050831
  Receipt Date: 20050614
  Transmission Date: 20060218
  Serious: Yes (Other)
  Sender: FDA-Public Use
  Company Number: GB-BRISTOL-MYERS SQUIBB COMPANY-13007927

PATIENT
  Age: 36 Year
  Sex: Male
  Weight: 90 kg

DRUGS (4)
  1. ABILIFY [Suspect]
     Indication: SCHIZOPHRENIA
     Route: 048
     Dates: start: 20040901, end: 20050601
  2. GABAPENTIN [Concomitant]
     Indication: MOOD ALTERED
     Dosage: THERAPY FROM: PRE-2000
     Route: 048
  3. CLOPIXOL [Concomitant]
     Indication: SCHIZOPHRENIA
     Dosage: THERAPY FROM: PRE-2000, DOSE 200 MG EVERY 2-3 WEEKS
     Route: 030
     Dates: end: 20050701
  4. PROCYCLIDINE HYDROCHLORIDE 2MG TAB [Concomitant]
     Indication: EXTRAPYRAMIDAL DISORDER
     Dosage: THERAPY FROM: PRE-2000
     Route: 048

REACTIONS (6)
  - CELLULITIS [None]
  - ECZEMA [None]
  - MENTAL IMPAIRMENT [None]
  - RASH PRURITIC [None]
  - SKIN DISORDER [None]
  - SKIN HAEMORRHAGE [None]
